FAERS Safety Report 23547628 (Version 3)
Quarter: 2024Q2

REPORT INFORMATION
  Report Type: Spontaneous
  Country: US (occurrence: US)
  Receive Date: 20240221
  Receipt Date: 20240626
  Transmission Date: 20240715
  Serious: No
  Sender: FDA-Public Use
  Company Number: US-LUPIN PHARMACEUTICALS INC.-2024-01279

PATIENT

DRUGS (1)
  1. ALBUTEROL SULFATE [Suspect]
     Active Substance: ALBUTEROL SULFATE
     Indication: Asthma
     Dosage: UNK, (2 PUFFS EVERY 4-6 HOURS AS NEEDED)
     Dates: start: 20240201

REACTIONS (3)
  - Wrong technique in product usage process [Unknown]
  - Product lot number issue [Unknown]
  - No adverse event [Unknown]
